FAERS Safety Report 6395396-8 (Version None)
Quarter: 2009Q4

REPORT INFORMATION
  Report Type: 
  Country: None (occurrence: None)
  Receive Date: 20091009
  Receipt Date: 20090929
  Transmission Date: 20100525
  Serious: Yes (Hospitalization)
  Sender: FDA-Public Use
  Company Number: US-ELI_LILLY_AND_COMPANY-US200909006794

PATIENT
  Sex: Female

DRUGS (8)
  1. BYETTA [Suspect]
     Dosage: 5 UG, 2/D
     Route: 058
     Dates: start: 20060101, end: 20060101
  2. BYETTA [Suspect]
     Dosage: 10 UG, 2/D
     Route: 058
     Dates: start: 20060101
  3. ACTOS                                   /AUS/ [Concomitant]
     Indication: TYPE 2 DIABETES MELLITUS
     Dosage: 30 MG, DAILY (1/D)
     Dates: end: 20090701
  4. LISINOPRIL [Concomitant]
     Indication: BLOOD PRESSURE
     Dosage: 20 MG, DAILY (1/D)
  5. FUROSEMIDE [Concomitant]
     Dosage: 20 MG, DAILY (1/D)
  6. CARVEDILOL [Concomitant]
     Indication: CARDIAC DISORDER
     Dosage: 25 MG, 2/D
  7. PLAVIX [Concomitant]
     Indication: CARDIAC DISORDER
     Dosage: 75 MG, DAILY (1/D)
  8. NITROGLYCERIN [Concomitant]
     Dosage: 5 MG, 2/D
     Route: 048

REACTIONS (3)
  - BACK PAIN [None]
  - INJECTION SITE SWELLING [None]
  - MYOCARDIAL INFARCTION [None]
